FAERS Safety Report 9761061 (Version 1)
Quarter: 2013Q4

REPORT INFORMATION
  Report Type: Spontaneous
  Country: US (occurrence: US)
  Receive Date: 20131216
  Receipt Date: 20131216
  Transmission Date: 20140711
  Serious: No
  Sender: FDA-Public Use
  Company Number: US-PFIZER INC-2013356252

PATIENT
  Sex: Male
  Weight: 2.27 kg

DRUGS (1)
  1. CHANTIX [Suspect]
     Indication: SMOKING CESSATION THERAPY
     Dosage: 0.5 MG, 1X/DAY
     Route: 064
     Dates: start: 200610, end: 200611

REACTIONS (2)
  - Maternal exposure during pregnancy [Unknown]
  - Feeding disorder neonatal [Unknown]
